FAERS Safety Report 4273488-7 (Version None)
Quarter: 2004Q1

REPORT INFORMATION
  Report Type: 
  Country: None (occurrence: None)
  Receive Date: 20040119
  Receipt Date: 20040112
  Transmission Date: 20041129
  Serious: Yes (Other)
  Sender: FDA-Public Use
  Company Number: US-GLAXOSMITHKLINE-A0492569A

PATIENT
  Age: 5 Year
  Sex: Male

DRUGS (2)
  1. SEREVENT [Suspect]
     Indication: ASTHMA
     Dosage: 1PUFF TWICE PER DAY
     Route: 055
     Dates: start: 20031229
  2. SINGULAIR [Concomitant]

REACTIONS (8)
  - CONVULSION [None]
  - DEPRESSED LEVEL OF CONSCIOUSNESS [None]
  - DYSPEPSIA [None]
  - ENURESIS [None]
  - HEAD BANGING [None]
  - HEADACHE [None]
  - IMMOBILE [None]
  - LOSS OF CONSCIOUSNESS [None]
